FAERS Safety Report 13445036 (Version 1)
Quarter: 2017Q2

REPORT INFORMATION
  Report Type: Spontaneous
  Country: SE (occurrence: SE)
  Receive Date: 20170414
  Receipt Date: 20170414
  Transmission Date: 20170830
  Serious: Yes (Other)
  Sender: FDA-Public Use
  Company Number: SE-TEVA-757815ISR

PATIENT
  Sex: Male

DRUGS (2)
  1. DETRUSITOL [Concomitant]
     Active Substance: TOLTERODINE TARTRATE
  2. TOLTERODINE [Suspect]
     Active Substance: TOLTERODINE

REACTIONS (3)
  - Feeling abnormal [Unknown]
  - Cognitive disorder [Unknown]
  - Sleep disorder [Unknown]
